FAERS Safety Report 4580225-5 (Version None)
Quarter: 2005Q1

REPORT INFORMATION
  Report Type: 
  Country: None (occurrence: None)
  Receive Date: 20050214
  Receipt Date: 20050106
  Transmission Date: 20050727
  Serious: Yes (Life-Threatening, Disabling, Other)
  Sender: FDA-Public Use
  Company Number: US-GLAXOSMITHKLINE-A0539683A

PATIENT
  Age: 57 Year
  Sex: Male
  Weight: 81.8 kg

DRUGS (5)
  1. PARNATE [Suspect]
     Indication: DEPRESSION SUICIDAL
     Dosage: 60MG PER DAY
     Route: 048
  2. DEXEDRINE [Concomitant]
  3. ESKALITH [Concomitant]
  4. VALIUM [Concomitant]
  5. TRAZODONE [Concomitant]

REACTIONS (3)
  - DEPRESSION [None]
  - DRUG INEFFECTIVE [None]
  - SUICIDAL IDEATION [None]
